FAERS Safety Report 19490850 (Version 1)
Quarter: 2021Q3

REPORT INFORMATION
  Report Type: Spontaneous
  Country: DE (occurrence: DE)
  Receive Date: 20210705
  Receipt Date: 20210705
  Transmission Date: 20211014
  Serious: Yes (Hospitalization)
  Sender: FDA-Public Use
  Company Number: DE-TEVA-2021-DE-1928316

PATIENT
  Age: 87 Year
  Sex: Female

DRUGS (14)
  1. PREDNISOLON [Suspect]
     Active Substance: PREDNISOLONE
     Dosage: 10 MILLIGRAM DAILY; 1?0?0?0
     Route: 048
  2. CALCIUMCARBONAT/COLECALCIFEROL (VITAMIN D) [Concomitant]
     Dosage: 1 DOSAGE FORMS DAILY; 1?0?0?0
     Route: 048
  3. MAGNESIUM VERLA [Concomitant]
     Active Substance: MAGNESIUM
     Dosage: IF NECESSARY
     Route: 048
  4. ALLOPURINOL. [Concomitant]
     Active Substance: ALLOPURINOL
     Dosage: 300 MILLIGRAM DAILY; 0?1?0?0
     Route: 048
  5. APIXABAN [Suspect]
     Active Substance: APIXABAN
     Dosage: 5 MILLIGRAM DAILY; 1?0?1?0
     Route: 048
  6. TORASEMID [Concomitant]
     Active Substance: TORSEMIDE
     Dosage: 10 MILLIGRAM DAILY; 1?0?0?0
     Route: 048
  7. NITRANGIN PUMPSPRAY [Concomitant]
     Dosage: IF NECESSARY, SPRAY
     Route: 048
  8. CITRONENSAURE/KALIUMCARBONAT/KALIUMCITRAT [Concomitant]
     Dosage: IF NECESSARY
     Route: 048
  9. PREGABALIN. [Concomitant]
     Active Substance: PREGABALIN
     Dosage: 25 MILLIGRAM DAILY; 1?0?0?0
     Route: 048
  10. VITAMIN D [Concomitant]
     Active Substance: VITAMIN D NOS
     Dosage: 2000 IU (INTERNATIONAL UNIT) DAILY; 1?0?0?0
     Route: 048
  11. EZETIMIB/SIMVASTATIN [Concomitant]
     Active Substance: EZETIMIBE\SIMVASTATIN
     Dosage: 1 DOSAGE FORMS DAILY; 10|20 MG, 0?0?1?0
     Route: 048
  12. OPIUMTINKTUR, EINGESTELLT [Concomitant]
     Dosage: 10 MG, 4 TO 6 DROPS 3 TIMES A DAY, DROPS
     Route: 048
  13. PANTOPRAZOL [Concomitant]
     Active Substance: PANTOPRAZOLE SODIUM
     Dosage: 80 MILLIGRAM DAILY; 1?0?1?0
     Route: 048
  14. CANDESARTAN. [Concomitant]
     Active Substance: CANDESARTAN
     Dosage: 16 MILLIGRAM DAILY; 1?0?0?0
     Route: 048

REACTIONS (6)
  - Weight bearing difficulty [Unknown]
  - Dyspepsia [Unknown]
  - General physical health deterioration [Unknown]
  - Decreased appetite [Unknown]
  - Dyspnoea [Unknown]
  - Weight decreased [Unknown]
